FAERS Safety Report 12216292 (Version 3)
Quarter: 2016Q2

REPORT INFORMATION
  Report Type: Spontaneous
  Country: HR (occurrence: HR)
  Receive Date: 20160329
  Receipt Date: 20160503
  Transmission Date: 20160815
  Serious: Yes (Life-Threatening, Hospitalization, Other)
  Sender: FDA-Public Use
  Company Number: HR-ABBVIE-16K-216-1591945-00

PATIENT
  Age: 41 Year
  Sex: Female

DRUGS (31)
  1. SULFASALAZINE. [Suspect]
     Active Substance: SULFASALAZINE
     Indication: RHEUMATOID ARTHRITIS
     Dosage: 2X2
     Route: 048
     Dates: start: 200907
  2. ARAVA [Suspect]
     Active Substance: LEFLUNOMIDE
     Route: 048
     Dates: start: 201001, end: 201103
  3. DECORTIN [Concomitant]
     Active Substance: PREDNISONE
     Dosage: 10-5MG
     Dates: start: 201407
  4. HUMIRA [Suspect]
     Active Substance: ADALIMUMAB
     Indication: RHEUMATOID ARTHRITIS
     Route: 058
     Dates: start: 201001, end: 201004
  5. DECORTIN [Concomitant]
     Active Substance: PREDNISONE
     Dosage: 10-5MG
     Dates: start: 201403
  6. DECORTIN [Concomitant]
     Active Substance: PREDNISONE
     Dates: start: 201410
  7. DECORTIN [Concomitant]
     Active Substance: PREDNISONE
     Dates: start: 201511
  8. ARAVA [Suspect]
     Active Substance: LEFLUNOMIDE
     Indication: RHEUMATOID ARTHRITIS
     Route: 048
     Dates: start: 200802
  9. ARAVA [Suspect]
     Active Substance: LEFLUNOMIDE
     Route: 048
     Dates: start: 200907
  10. ARAVA [Suspect]
     Active Substance: LEFLUNOMIDE
     Route: 048
     Dates: start: 201108
  11. ARAVA [Suspect]
     Active Substance: LEFLUNOMIDE
     Route: 048
     Dates: start: 201212, end: 201304
  12. INFLECTRA [Suspect]
     Active Substance: INFLIXIMAB-DYYB
     Indication: PRODUCT USED FOR UNKNOWN INDICATION
     Route: 065
     Dates: start: 201501, end: 201503
  13. DECORTIN [Concomitant]
     Active Substance: PREDNISONE
     Indication: RHEUMATOID ARTHRITIS
     Dates: start: 200707
  14. DECORTIN [Concomitant]
     Active Substance: PREDNISONE
     Dates: start: 201304
  15. HUMIRA [Suspect]
     Active Substance: ADALIMUMAB
     Route: 058
     Dates: start: 201212, end: 201304
  16. ARAVA [Suspect]
     Active Substance: LEFLUNOMIDE
     Dosage: 10-20 MG
     Route: 048
     Dates: start: 201407
  17. DECORTIN [Concomitant]
     Active Substance: PREDNISONE
     Dosage: 10-5MG
     Dates: start: 201001, end: 201103
  18. HUMIRA [Suspect]
     Active Substance: ADALIMUMAB
     Route: 058
     Dates: start: 201108
  19. ARAVA [Suspect]
     Active Substance: LEFLUNOMIDE
     Route: 048
     Dates: start: 201410
  20. ENBREL [Suspect]
     Active Substance: ETANERCEPT
     Indication: PRODUCT USED FOR UNKNOWN INDICATION
     Route: 065
     Dates: start: 201407, end: 201410
  21. DECORTIN [Concomitant]
     Active Substance: PREDNISONE
     Dates: start: 200802
  22. DECORTIN [Concomitant]
     Active Substance: PREDNISONE
     Dosage: 7.5-10 MG
     Dates: start: 201603
  23. SULFASALAZINE. [Suspect]
     Active Substance: SULFASALAZINE
     Route: 048
     Dates: start: 201001, end: 201004
  24. SULFASALAZINE. [Suspect]
     Active Substance: SULFASALAZINE
     Route: 048
     Dates: end: 201304
  25. CALCIUM [Concomitant]
     Active Substance: CALCIUM
     Indication: PRODUCT USED FOR UNKNOWN INDICATION
     Dates: start: 200712
  26. HUMIRA [Suspect]
     Active Substance: ADALIMUMAB
     Route: 058
     Dates: start: 201601
  27. SULFASALAZINE. [Suspect]
     Active Substance: SULFASALAZINE
     Route: 048
     Dates: start: 201103, end: 201103
  28. DECORTIN [Concomitant]
     Active Substance: PREDNISONE
     Dosage: REDUCTION TO 5 MG
     Dates: start: 200712
  29. ARAVA [Suspect]
     Active Substance: LEFLUNOMIDE
     Dosage: 10-20 MG
     Route: 048
     Dates: start: 201403
  30. DECORTIN [Concomitant]
     Active Substance: PREDNISONE
     Dosage: 15-10 MG
     Dates: start: 201309
  31. VITAMIN D [Concomitant]
     Active Substance: CHOLECALCIFEROL
     Indication: PRODUCT USED FOR UNKNOWN INDICATION
     Dates: start: 200712

REACTIONS (15)
  - General physical health deterioration [Unknown]
  - Eye swelling [Unknown]
  - Hepatic enzyme increased [Recovered/Resolved]
  - Polyarthritis [Unknown]
  - Hepatotoxicity [Unknown]
  - Suicide attempt [Unknown]
  - Rheumatoid arthritis [Not Recovered/Not Resolved]
  - Bone erosion [Unknown]
  - Mobility decreased [Unknown]
  - Bone erosion [Unknown]
  - Abdominal pain [Unknown]
  - Suicide attempt [Unknown]
  - Suicide attempt [Unknown]
  - Infusion related reaction [Recovered/Resolved]
  - Pyrexia [Recovered/Resolved]

NARRATIVE: CASE EVENT DATE: 201103
